FAERS Safety Report 8924987 (Version 1)
Quarter: 2012Q4

REPORT INFORMATION
  Report Type: 
  Country: US (occurrence: US)
  Receive Date: 20121126
  Receipt Date: 20121126
  Transmission Date: 20130627
  Serious: No
  Sender: FDA-Public Use
  Company Number: US-BAYER-2012-120049

PATIENT
  Age: 27 Year
  Sex: Female
  Weight: 58.28 kg

DRUGS (4)
  1. YAZ [Suspect]
  2. YASMIN [Suspect]
  3. OCELLA [Suspect]
  4. ZOLOFT [Concomitant]

REACTIONS (1)
  - Thrombophlebitis superficial [Recovered/Resolved]
